FAERS Safety Report 24667831 (Version 2)
Quarter: 2024Q4

REPORT INFORMATION
  Report Type: Spontaneous
  Country: JP (occurrence: JP)
  Receive Date: 20241127
  Receipt Date: 20241210
  Transmission Date: 20250115
  Serious: No
  Sender: AMGEN
  Company Number: JP-KYOWAKIRIN-2024KK026457

PATIENT

DRUGS (2)
  1. CINACALCET HYDROCHLORIDE [Suspect]
     Active Substance: CINACALCET HYDROCHLORIDE
     Indication: Product used for unknown indication
     Dosage: UNK
     Route: 048
  2. EVOCALCET [Suspect]
     Active Substance: EVOCALCET
     Indication: Product used for unknown indication
     Dosage: UNK
     Route: 048

REACTIONS (1)
  - Marasmus [Unknown]
